FAERS Safety Report 15756550 (Version 1)
Quarter: 2018Q4

REPORT INFORMATION
  Report Type: Spontaneous
  Country: US (occurrence: US)
  Receive Date: 20181222
  Receipt Date: 20181222
  Transmission Date: 20190205
  Serious: Yes (Disabling, Other)
  Sender: FDA-Public Use
  Company Number: None

PATIENT
  Age: 62 Year
  Sex: Female
  Weight: 65.25 kg

DRUGS (3)
  1. ALEVE [Concomitant]
     Active Substance: NAPROXEN SODIUM
  2. KLONOPIN [Concomitant]
     Active Substance: CLONAZEPAM
  3. OXYCODONE 15 MG MANUFACTURED BY CAMBER [Suspect]
     Active Substance: OXYCODONE
     Indication: PAIN
     Dosage: ?          QUANTITY:30 TABLET(S);?
     Route: 048
     Dates: start: 20181218, end: 20181218

REACTIONS (5)
  - Visual impairment [None]
  - Drug ineffective [None]
  - Fear [None]
  - Retinal tear [None]
  - Influenza like illness [None]

NARRATIVE: CASE EVENT DATE: 20181218
